FAERS Safety Report 7693202-2 (Version None)
Quarter: 2011Q3

REPORT INFORMATION
  Report Type: 
  Country: None (occurrence: None)
  Receive Date: 20110819
  Receipt Date: 20110809
  Transmission Date: 20111222
  Serious: Yes (Hospitalization, Other)
  Sender: FDA-Public Use
  Company Number: US-BAYER-201014808NA

PATIENT
  Age: 45 Year
  Sex: Female
  Weight: 47.619 kg

DRUGS (10)
  1. LIPITOR [Concomitant]
     Dosage: UNK
     Dates: start: 20081201
  2. YAZ [Suspect]
     Indication: MENSTRUAL CYCLE MANAGEMENT
     Dosage: UNK
     Route: 048
     Dates: start: 20081017, end: 20081114
  3. FLUTICASONE PROPIONATE [Concomitant]
     Indication: NASAL CONGESTION
     Dosage: UNK
     Route: 045
  4. PLAVIX [Concomitant]
     Dosage: UNK
     Dates: start: 20081201
  5. TPN [Concomitant]
     Indication: NUTRITIONAL SUPPORT
     Dosage: UNK
     Dates: start: 20081201
  6. LOVENOX [Concomitant]
     Dosage: UNK
     Dates: start: 20081201
  7. ASPIRIN [Concomitant]
     Dosage: UNK
     Dates: start: 20081201, end: 20081201
  8. CONTRACEPTIVES NOS [Concomitant]
     Dosage: UNK
     Dates: end: 20081201
  9. YAZ [Suspect]
     Indication: PREMENSTRUAL SYNDROME
     Dosage: AS USED DOSE: UNK
     Route: 048
     Dates: start: 20081018, end: 20081207
  10. ONE-A-DAY [Concomitant]
     Indication: VITAMIN SUPPLEMENTATION
     Dosage: UNK

REACTIONS (4)
  - MOTOR DYSFUNCTION [None]
  - CEREBROVASCULAR ACCIDENT [None]
  - APHASIA [None]
  - COGNITIVE DISORDER [None]
